FAERS Safety Report 10050426 (Version 2)
Quarter: 2014Q2

REPORT INFORMATION
  Report Type: Spontaneous
  Country: JP (occurrence: JP)
  Receive Date: 20140401
  Receipt Date: 20140624
  Transmission Date: 20141212
  Serious: Yes (Life-Threatening, Other)
  Sender: FDA-Public Use
  Company Number: JP-DSJP-DSJ-2014-102951AA

PATIENT
  Sex: 0

DRUGS (5)
  1. OLMETEC [Suspect]
     Indication: HYPERTENSION
     Dosage: 10 MG, QD
     Route: 048
     Dates: start: 20140214, end: 20140215
  2. OLMETEC [Suspect]
     Indication: GLOMERULONEPHRITIS CHRONIC
  3. CONIEL [Suspect]
     Indication: HYPERTENSION
     Dosage: 4 MG, QD
     Route: 048
     Dates: start: 20140215, end: 20140215
  4. PERDIPINE [Concomitant]
     Dosage: UNK
     Route: 065
  5. KAYWAN [Concomitant]
     Indication: THROMBOSIS
     Dosage: 20 MG, QD
     Route: 048
     Dates: start: 20140215, end: 20140215

REACTIONS (2)
  - Cardio-respiratory arrest [Recovered/Resolved]
  - Ventricular fibrillation [Unknown]
